FAERS Safety Report 4394535-8 (Version None)
Quarter: 2004Q3

REPORT INFORMATION
  Report Type: 
  Country: None (occurrence: None)
  Receive Date: 20040712
  Receipt Date: 20040430
  Transmission Date: 20050211
  Serious: Yes (Life-Threatening, Hospitalization)
  Sender: FDA-Public Use
  Company Number: JP-BRISTOL-MYERS SQUIBB COMPANY-12575106

PATIENT
  Age: 27 Year
  Sex: Female

DRUGS (9)
  1. BRIPLATIN [Suspect]
     Indication: HODGKIN'S DISEASE STAGE III
     Dosage: THERAPY DATES: 09-FEB TO 24-APR-2004
     Route: 042
     Dates: start: 20040424, end: 20040424
  2. METHYLPREDNISOLONE SODIUM SUCCINATE [Suspect]
     Indication: HODGKIN'S DISEASE STAGE III
     Dosage: THERAPY FROM 09-FEB - 23-APR-04
     Route: 042
     Dates: start: 20040423, end: 20040423
  3. LASTET [Concomitant]
     Indication: LYMPHOMA
     Route: 042
     Dates: start: 20040209, end: 20040422
  4. CYTARABINE [Concomitant]
     Indication: LYMPHOMA
     Route: 042
     Dates: start: 20040213, end: 20040423
  5. GRANISETRON HCL [Concomitant]
     Route: 042
     Dates: start: 20040209, end: 20040423
  6. RABEPRAZOLE SODIUM [Concomitant]
     Route: 048
     Dates: start: 20040202, end: 20040426
  7. REBAMIPIDE [Concomitant]
     Route: 048
     Dates: start: 20040202, end: 20040426
  8. FLUCONAZOLE [Concomitant]
     Route: 048
     Dates: start: 20040203, end: 20040426
  9. SULFAMETHOXAZOLE + TRIMETHOPRIM [Concomitant]
     Route: 048
     Dates: start: 20040203, end: 20040426

REACTIONS (2)
  - MYOCARDIAL INFARCTION [None]
  - PANCYTOPENIA [None]
